FAERS Safety Report 6732766-X (Version None)
Quarter: 2010Q2

REPORT INFORMATION
  Report Type: 
  Country: None (occurrence: None)
  Receive Date: 20100519
  Receipt Date: 20100517
  Transmission Date: 20101027
  Serious: No
  Sender: FDA-Public Use
  Company Number: US-B.I. PHARMACEUTICALS,INC./RIDGEFIELD-2010-BP-05689BP

PATIENT

DRUGS (2)
  1. MIRAPEX [Suspect]
  2. SINEMET [Concomitant]

REACTIONS (1)
  - CONFUSIONAL STATE [None]
